FAERS Safety Report 4811198-5 (Version None)
Quarter: 2005Q4

REPORT INFORMATION
  Report Type: 
  Country: None (occurrence: None)
  Receive Date: 20051027
  Receipt Date: 20051017
  Transmission Date: 20060501
  Serious: Yes (Other)
  Sender: FDA-Public Use
  Company Number: DE-JNJFOC-20051003767

PATIENT
  Age: 54 Year
  Sex: Female

DRUGS (3)
  1. TOPAMAX [Suspect]
     Route: 048
  2. TOPAMAX [Suspect]
     Route: 048
  3. TOPAMAX [Suspect]
     Indication: MIGRAINE
     Route: 048

REACTIONS (5)
  - DEPRESSION [None]
  - DYSAESTHESIA [None]
  - MIGRAINE [None]
  - PARESIS [None]
  - SLEEP DISORDER [None]
